FAERS Safety Report 12458311 (Version 15)
Quarter: 2018Q1

REPORT INFORMATION
  Report Type: Report from Study
  Country: IT (occurrence: IT)
  Receive Date: 20160613
  Receipt Date: 20180302
  Transmission Date: 20180508
  Serious: Yes (Life-Threatening, Hospitalization, Other)
  Sender: FDA-Public Use
  Company Number: IT-ROCHE-1754636

PATIENT
  Age: 61 Year
  Sex: Male
  Weight: 70 kg

DRUGS (28)
  1. 5-FLUOROURACIL [Suspect]
     Active Substance: FLUOROURACIL
     Indication: COLORECTAL CANCER METASTATIC
     Dosage: DATE OF MOST RECENT DOSE PRIOR TO SAE: 20/APR/2016 AT 14:45
     Route: 042
     Dates: start: 20160224
  2. BACTRIM [Concomitant]
     Active Substance: SULFAMETHOXAZOLE\TRIMETHOPRIM
     Indication: PNEUMOCYSTIS JIROVECII INFECTION
     Route: 065
     Dates: start: 20160506, end: 20160511
  3. PANTOPRAZOLO [Concomitant]
     Active Substance: PANTOPRAZOLE SODIUM
     Route: 065
     Dates: start: 20160506, end: 20160523
  4. CEXIDAL [Concomitant]
     Indication: HYPOACUSIS
     Route: 065
     Dates: start: 20160412, end: 20160422
  5. ATEZOLIZUMAB. [Suspect]
     Active Substance: ATEZOLIZUMAB
     Indication: COLORECTAL CANCER METASTATIC
     Dosage: DATE OF MOST RECENT DOSE (800 MG)  PRIOR TO SAE: 20/APR/2016 AT 10:00
     Route: 042
     Dates: start: 20160224
  6. DESAMETASONE [Concomitant]
     Active Substance: DEXAMETHASONE
     Indication: PREMEDICATION
     Route: 065
     Dates: start: 20151019, end: 20160420
  7. PROPOFOL. [Concomitant]
     Active Substance: PROPOFOL
     Indication: PROPHYLAXIS
     Route: 065
     Dates: start: 20160506, end: 20160523
  8. TRIATEC (ITALY) [Concomitant]
     Active Substance: RAMIPRIL
     Route: 065
     Dates: start: 20160111
  9. BORAL PLUS [Concomitant]
     Indication: HYPOACUSIS
     Dosage: 1 PUFF
     Route: 065
     Dates: start: 20160412, end: 20160422
  10. NADROPARIN [Concomitant]
     Active Substance: NADROPARIN
     Indication: CEREBROVASCULAR ACCIDENT
     Route: 065
     Dates: start: 20160505, end: 20160511
  11. BENTELAN [Concomitant]
     Active Substance: BETAMETHASONE SODIUM PHOSPHATE
     Indication: HYPOACUSIS
     Route: 065
     Dates: start: 20160412, end: 20160420
  12. CEFAZOLINA [Concomitant]
     Active Substance: CEFAZOLIN SODIUM
     Indication: PNEUMOCYSTIS JIROVECII INFECTION
     Route: 065
     Dates: start: 20160506, end: 20160511
  13. FUROSEMIDE. [Concomitant]
     Active Substance: FUROSEMIDE
     Indication: PROPHYLAXIS
     Route: 065
     Dates: start: 20160510, end: 20160512
  14. INSULINE [Concomitant]
     Active Substance: INSULIN NOS
     Route: 065
     Dates: start: 20160506, end: 20160523
  15. BEVACIZUMAB. [Suspect]
     Active Substance: BEVACIZUMAB
     Indication: COLORECTAL CANCER METASTATIC
     Dosage: DATE OF MOST RECENT DOSE (330 MG) PRIOR TO SAE: 20/APR/2016 AT 11:00
     Route: 042
     Dates: start: 20151019
  16. CLORFENAMINA [Concomitant]
     Indication: PREMEDICATION
     Route: 065
     Dates: start: 20151019, end: 20160420
  17. ONDANSETRON [Concomitant]
     Active Substance: ONDANSETRON
     Indication: PREMEDICATION
     Route: 065
     Dates: start: 20151019, end: 20160420
  18. SANDOZ-CALCIUM [Concomitant]
     Indication: HYPOCALCAEMIA
     Route: 065
     Dates: start: 20151030, end: 20151224
  19. VANCOMICINA [Concomitant]
     Active Substance: VANCOMYCIN
     Indication: PNEUMOCYSTIS JIROVECII INFECTION
     Route: 065
     Dates: start: 20160508, end: 20160509
  20. METOCLOPRAMIDE. [Concomitant]
     Active Substance: METOCLOPRAMIDE
     Route: 065
     Dates: start: 20160506, end: 20160509
  21. PIPERACILLIN [Concomitant]
     Active Substance: PIPERACILLIN
     Indication: PNEUMOCYSTIS JIROVECII INFECTION
     Route: 065
     Dates: start: 20160506, end: 20160511
  22. RAMIPRIL. [Concomitant]
     Active Substance: RAMIPRIL
     Indication: PROPHYLAXIS
     Route: 065
     Dates: start: 20160511, end: 20160523
  23. ROCEPHIN [Concomitant]
     Active Substance: CEFTRIAXONE SODIUM
     Indication: HYPOACUSIS
     Route: 065
     Dates: start: 20160412, end: 20160420
  24. ALOPERIDOLO [Concomitant]
     Active Substance: HALOPERIDOL
     Indication: PROPHYLAXIS
     Route: 065
     Dates: start: 20160506, end: 20160523
  25. NADROPARIN [Concomitant]
     Active Substance: NADROPARIN
     Indication: CEREBRAL ISCHAEMIA
     Route: 065
     Dates: start: 20160517, end: 20160523
  26. VISTAGAN [Concomitant]
     Route: 065
     Dates: start: 2011
  27. FOLINIC ACID [Suspect]
     Active Substance: LEUCOVORIN
     Indication: COLORECTAL CANCER METASTATIC
     Dosage: DATE OF MOST RECENT DOSE (384 MG) PRIOR TO SAE: 20/APR/2016
     Route: 042
     Dates: start: 20160224
  28. DOXAZOSIN [Concomitant]
     Active Substance: DOXAZOSIN\DOXAZOSIN MESYLATE
     Indication: PROPHYLAXIS
     Route: 065
     Dates: start: 20160513, end: 20160523

REACTIONS (2)
  - Respiratory failure [Recovered/Resolved with Sequelae]
  - Deep vein thrombosis [Recovered/Resolved]

NARRATIVE: CASE EVENT DATE: 20160505
